FAERS Safety Report 6279719-6 (Version None)
Quarter: 2009Q3

REPORT INFORMATION
  Report Type: 
  Country: None (occurrence: None)
  Receive Date: 20090723
  Receipt Date: 20090629
  Transmission Date: 20100115
  Serious: Yes (Hospitalization)
  Sender: FDA-Public Use
  Company Number: CA-TEVA-200352USA

PATIENT
  Age: 81 Year
  Sex: Male

DRUGS (3)
  1. CLARITHROMYCIN [Interacting]
     Indication: HELICOBACTER GASTRITIS
  2. CLARITHROMYCIN [Concomitant]
  3. FENTANYL-100 [Suspect]

REACTIONS (14)
  - AGITATION [None]
  - CHRONIC OBSTRUCTIVE PULMONARY DISEASE [None]
  - DRUG INTERACTION [None]
  - DRUG WITHDRAWAL SYNDROME [None]
  - GASTROINTESTINAL HAEMORRHAGE [None]
  - HELICOBACTER GASTRITIS [None]
  - HYPOVENTILATION [None]
  - IRON DEFICIENCY ANAEMIA [None]
  - MIOSIS [None]
  - PAROTITIS [None]
  - RESPIRATORY DEPRESSION [None]
  - RESPIRATORY DISTRESS [None]
  - RESPIRATORY RATE DECREASED [None]
  - UNRESPONSIVE TO STIMULI [None]
